FAERS Safety Report 13381040 (Version 3)
Quarter: 2017Q3

REPORT INFORMATION
  Report Type: Spontaneous
  Country: US (occurrence: US)
  Receive Date: 20170329
  Receipt Date: 20170714
  Transmission Date: 20171127
  Serious: No
  Sender: FDA-Public Use
  Company Number: US-PFIZER INC-2017131893

PATIENT
  Age: 37 Year
  Sex: Female
  Weight: 83 kg

DRUGS (1)
  1. DEPO-PROVERA [Suspect]
     Active Substance: MEDROXYPROGESTERONE ACETATE
     Indication: CONTRACEPTION
     Dosage: UNKNOWN DOSE, ADMINISTERED IN BUTTOX FOR ONE AND ARM FOR ANOTHER

REACTIONS (3)
  - Alopecia [Not Recovered/Not Resolved]
  - Polymenorrhoea [Unknown]
  - Weight increased [Unknown]
